FAERS Safety Report 9880887 (Version 4)
Quarter: 2014Q2

REPORT INFORMATION
  Report Type: Spontaneous
  Country: US (occurrence: US)
  Receive Date: 20140207
  Receipt Date: 20140606
  Transmission Date: 20141212
  Serious: Yes (Hospitalization, Disabling)
  Sender: FDA-Public Use
  Company Number: US-SA-2014SA015257

PATIENT
  Age: 68 Year
  Sex: Female
  Weight: 78.01 kg

DRUGS (9)
  1. LANTUS [Suspect]
     Indication: TYPE 2 DIABETES MELLITUS
     Dosage: DOSE:38 UNIT(S)
     Route: 058
  2. LANTUS [Suspect]
     Indication: TYPE 2 DIABETES MELLITUS
     Dosage: DOSE:38 UNIT(S)
     Route: 058
  3. LANTUS SOLOSTAR [Suspect]
     Indication: TYPE 2 DIABETES MELLITUS
     Route: 058
  4. SOLOSTAR [Concomitant]
  5. LEVOXYL [Concomitant]
     Indication: THYROID DISORDER
     Route: 065
  6. ZEMPLAR [Concomitant]
     Indication: THYROID DISORDER
     Route: 065
  7. SENSIPAR [Concomitant]
     Indication: THYROID DISORDER
     Route: 065
  8. EVISTA [Concomitant]
     Indication: OSTEOPOROSIS
     Route: 065
  9. BUMEX [Concomitant]
     Indication: OEDEMA
     Route: 065

REACTIONS (8)
  - Bronchitis [Unknown]
  - Lymphoedema [Unknown]
  - Fluid overload [Unknown]
  - Walking aid user [Unknown]
  - Asthenia [Unknown]
  - Stress [Unknown]
  - Blood glucose increased [Not Recovered/Not Resolved]
  - Blood glucose fluctuation [Not Recovered/Not Resolved]
